FAERS Safety Report 5233414-0 (Version None)
Quarter: 2007Q1

REPORT INFORMATION
  Report Type: 
  Country: None (occurrence: None)
  Receive Date: 20070208
  Receipt Date: 20070130
  Transmission Date: 20070707
  Serious: Yes (Other)
  Sender: FDA-Public Use
  Company Number: HQWYE956230JAN07

PATIENT
  Age: 91 Year
  Sex: Male

DRUGS (1)
  1. CORDARONE [Suspect]
     Indication: ATRIAL FIBRILLATION
     Dosage: 150 MG IN NORMAL SALINE 20 ML FOLLOWED BY AN INFUSION OF 300 MG WITH 4 U OF INSULIN IN 5% GLUCOSE
     Route: 042

REACTIONS (3)
  - INJECTION SITE INDURATION [None]
  - INJECTION SITE INFLAMMATION [None]
  - WRONG TECHNIQUE IN DRUG USAGE PROCESS [None]
